FAERS Safety Report 22121490 (Version 1)
Quarter: 2023Q1

REPORT INFORMATION
  Report Type: Spontaneous
  Country: US (occurrence: None)
  Receive Date: 20230321
  Receipt Date: 20230321
  Transmission Date: 20230418
  Serious: Yes (unspecified)
  Sender: FDA-Public Use
  Company Number: None

PATIENT
  Age: 55 Year
  Sex: Female
  Weight: 49.5 kg

DRUGS (1)
  1. LASTACAFT [Suspect]
     Active Substance: ALCAFTADINE
     Indication: Seasonal allergy
     Dosage: OTHER FREQUENCY : AS NEEDED;?
     Route: 047

REACTIONS (9)
  - Eye irritation [None]
  - Dry eye [None]
  - Eye pruritus [None]
  - Swelling of eyelid [None]
  - Erythema of eyelid [None]
  - Retinal exudates [None]
  - Eyelid margin crusting [None]
  - Eye haemorrhage [None]
  - Hypersensitivity [None]

NARRATIVE: CASE EVENT DATE: 20130320
